FAERS Safety Report 15150270 (Version 1)
Quarter: 2018Q3

REPORT INFORMATION
  Report Type: Spontaneous
  Country: GB (occurrence: GB)
  Receive Date: 20180716
  Receipt Date: 20180716
  Transmission Date: 20181010
  Serious: Yes (Other)
  Sender: FDA-Public Use
  Company Number: GB-US WORLDMEDS, LLC-STA_00017465

PATIENT
  Sex: Female

DRUGS (5)
  1. CO?BENELDOPA [Concomitant]
     Active Substance: BENSERAZIDE HYDROCHLORIDE\LEVODOPA
     Indication: PARKINSON^S DISEASE
     Dosage: 25/100 TDS, PO
     Dates: start: 20041124
  2. CANDESARTAN. [Concomitant]
     Active Substance: CANDESARTAN
     Indication: HYPERTENSION
     Dosage: 16MG OD, PO
     Route: 048
     Dates: start: 20070315
  3. APOMORPHINE HYDROCHLORIDE [Suspect]
     Active Substance: APOMORPHINE HYDROCHLORIDE
     Indication: PARKINSON^S DISEASE
     Route: 058
     Dates: start: 201506
  4. CO?BENELDOPA [Concomitant]
     Active Substance: BENSERAZIDE HYDROCHLORIDE\LEVODOPA
     Indication: PARKINSON^S DISEASE
     Dosage: 2MG TDS, PO
     Route: 048
     Dates: start: 20080812
  5. BISOPROLOL [Concomitant]
     Active Substance: BISOPROLOL
     Indication: PARKINSON^S DISEASE
     Dosage: 2.5MG OD, PO
     Route: 048
     Dates: start: 20141219

REACTIONS (3)
  - Blindness [Not Recovered/Not Resolved]
  - Delirium [Not Recovered/Not Resolved]
  - Dyskinesia [Not Recovered/Not Resolved]

NARRATIVE: CASE EVENT DATE: 20150828
